FAERS Safety Report 4454373-4 (Version None)
Quarter: 2004Q3

REPORT INFORMATION
  Report Type: 
  Country: None (occurrence: None)
  Receive Date: 20040917
  Receipt Date: 20040917
  Transmission Date: 20050211
  Serious: Yes (Death, Life-Threatening, Hospitalization)
  Sender: FDA-Public Use
  Company Number: None

PATIENT
  Age: 56 Year
  Sex: Male

DRUGS (9)
  1. INTEGRILIN [Suspect]
     Indication: CORONARY ANGIOPLASTY
     Dosage: 16 CC IV/ HR
     Route: 042
     Dates: start: 20041110, end: 20041117
  2. HEPARIN [Suspect]
     Indication: CORONARY ANGIOPLASTY
     Dosage: 12,000 UNITS   TOTAL DOSE
     Dates: start: 20041110
  3. CONTRAST - OMNIPAQUE [Suspect]
     Indication: CATHETERISATION CARDIAC
     Dosage: 225 MG
     Dates: start: 20041110
  4. AVAPRO [Concomitant]
  5. LIPITOR [Concomitant]
  6. GLUCOPHAGE [Concomitant]
  7. GLUCOTROL [Concomitant]
  8. ASPIRIN [Concomitant]
  9. COMBIVENT [Concomitant]

REACTIONS (11)
  - ACIDOSIS [None]
  - ANAPHYLACTIC REACTION [None]
  - ATRIAL FIBRILLATION [None]
  - CONTRAST MEDIA REACTION [None]
  - COUGH [None]
  - PROCEDURAL COMPLICATION [None]
  - PUPIL FIXED [None]
  - RENAL TUBULAR NECROSIS [None]
  - RESPIRATORY FAILURE [None]
  - RETROPERITONEAL HAEMORRHAGE [None]
  - SHOCK HAEMORRHAGIC [None]
